FAERS Safety Report 15231538 (Version 1)
Quarter: 2018Q3

REPORT INFORMATION
  Report Type: Spontaneous
  Country: US (occurrence: US)
  Receive Date: 20180708
  Receipt Date: 20180708
  Transmission Date: 20181010
  Serious: No
  Sender: FDA-Public Use
  Company Number: None

PATIENT
  Age: 49 Year
  Sex: Female
  Weight: 94.95 kg

DRUGS (9)
  1. BUSPAR [Concomitant]
     Active Substance: BUSPIRONE HYDROCHLORIDE
  2. LAMOTRIGINE (LAMICTAL) [Concomitant]
  3. PROVIGIL [Concomitant]
     Active Substance: MODAFINIL
  4. ASPIRIN. [Concomitant]
     Active Substance: ASPIRIN
  5. EXCEDRIN [Concomitant]
     Active Substance: ACETAMINOPHEN\ASPIRIN\CAFFEINE
  6. ASMANEX [Suspect]
     Active Substance: MOMETASONE FUROATE
     Indication: ASTHMA
     Dosage: ?          QUANTITY:1 INHALATION(S);?
     Route: 055
     Dates: start: 20180706, end: 20180708
  7. JANUVIA [Concomitant]
     Active Substance: SITAGLIPTIN PHOSPHATE
  8. FERROUS GLUTAMATE (IRON) [Concomitant]
  9. DESVENLAFAXINE ER SUCCINATE (PRISTIQ) [Concomitant]

REACTIONS (6)
  - Diarrhoea [None]
  - Abdominal discomfort [None]
  - Nausea [None]
  - Dizziness [None]
  - Asthma [None]
  - Migraine [None]

NARRATIVE: CASE EVENT DATE: 20180707
